FAERS Safety Report 9997517 (Version 1)
Quarter: 2014Q1

REPORT INFORMATION
  Report Type: Spontaneous
  Country: US (occurrence: US)
  Receive Date: 20140311
  Receipt Date: 20140311
  Transmission Date: 20141002
  Serious: No
  Sender: FDA-Public Use
  Company Number: US-GLAXOSMITHKLINE-A1054070A

PATIENT
  Sex: Female

DRUGS (1)
  1. NICORETTE OTC, UNSPECIFIED [Suspect]
     Indication: PRODUCT USED FOR UNKNOWN INDICATION

REACTIONS (7)
  - Oral disorder [Unknown]
  - Tooth disorder [Unknown]
  - Jaw disorder [Unknown]
  - Headache [Unknown]
  - Dyspepsia [Unknown]
  - Hyperhidrosis [Unknown]
  - Diarrhoea [Unknown]
